FAERS Safety Report 14191037 (Version 2)
Quarter: 2018Q1

REPORT INFORMATION
  Report Type: Spontaneous
  Country: US (occurrence: US)
  Receive Date: 20171115
  Receipt Date: 20180117
  Transmission Date: 20180508
  Serious: No
  Sender: FDA-Public Use
  Company Number: US-BAYER-2017-218005

PATIENT
  Age: 22 Year
  Sex: Female

DRUGS (1)
  1. KYLEENA [Suspect]
     Active Substance: LEVONORGESTREL
     Indication: CONTRACEPTION
     Dosage: 17.5 MCG/24HR, CONT
     Route: 015
     Dates: start: 20171020, end: 20171020

REACTIONS (4)
  - Procedural pain [Recovered/Resolved]
  - Complication of device insertion [Recovered/Resolved]
  - Device malfunction [Recovered/Resolved]
  - Post procedural discomfort [Recovered/Resolved]

NARRATIVE: CASE EVENT DATE: 20171020
